FAERS Safety Report 8857453 (Version 1)
Quarter: 2012Q4

REPORT INFORMATION
  Report Type: 
  Country: US (occurrence: US)
  Receive Date: 20121024
  Receipt Date: 20121024
  Transmission Date: 20130627
  Serious: No
  Sender: FDA-Public Use
  Company Number: US-ROCHE-GNE252338

PATIENT
  Age: 78 Year
  Sex: Female

DRUGS (3)
  1. RAPTIVA [Suspect]
     Indication: PSORIASIS
     Dosage: 0.9 mL, 1/Week
     Route: 058
     Dates: start: 20071107
  2. RAPTIVA [Suspect]
     Indication: PSORIATIC ARTHROPATHY
  3. HUMIRA [Concomitant]

REACTIONS (2)
  - Influenza [Recovered/Resolved]
  - Urticaria [Unknown]
